FAERS Safety Report 5161932-2 (Version None)
Quarter: 2006Q4

REPORT INFORMATION
  Report Type: 
  Country: None (occurrence: None)
  Receive Date: 20061130
  Receipt Date: 20061027
  Transmission Date: 20070319
  Serious: No
  Sender: FDA-Public Use
  Company Number: US-GLAXOSMITHKLINE-A0625201A

PATIENT
  Age: 52 Year
  Sex: Male

DRUGS (5)
  1. WELLBUTRIN XL [Suspect]
     Indication: MIGRAINE
     Dosage: 150MG PER DAY
     Route: 048
     Dates: start: 20061012, end: 20061013
  2. NORVASC [Concomitant]
  3. DDAVP [Concomitant]
  4. CHLOR-TRIMETON [Concomitant]
  5. ASPIRIN [Concomitant]

REACTIONS (2)
  - PYREXIA [None]
  - RASH GENERALISED [None]
